FAERS Safety Report 11604283 (Version 1)
Quarter: 2015Q4

REPORT INFORMATION
  Report Type: Spontaneous
  Country: US (occurrence: None)
  Receive Date: 20151006
  Receipt Date: 20151006
  Transmission Date: 20160304
  Serious: Yes (Disabling)
  Sender: FDA-Public Use
  Company Number: None

PATIENT
  Age: 82 Year
  Sex: Male
  Weight: 80.29 kg

DRUGS (9)
  1. COREG [Concomitant]
     Active Substance: CARVEDILOL
  2. DIGOXIN. [Concomitant]
     Active Substance: DIGOXIN
  3. WARFARIN [Concomitant]
     Active Substance: WARFARIN
  4. LEVOTHYROXIN [Concomitant]
     Active Substance: LEVOTHYROXINE
  5. FUROSEMIDE. [Concomitant]
     Active Substance: FUROSEMIDE
  6. KLOR KON [Concomitant]
  7. MULTIPLE VITAMINS [Concomitant]
     Active Substance: VITAMINS
  8. THORAZINE [Suspect]
     Active Substance: CHLORPROMAZINE
     Indication: DEMENTIA
     Dates: start: 20150920, end: 20150921
  9. LISINIPRIL [Concomitant]

REACTIONS (12)
  - Chills [None]
  - Confusional state [None]
  - Hyperhidrosis [None]
  - Somnolence [None]
  - Insomnia [None]
  - Dyspnoea [None]
  - Restlessness [None]
  - Agitation [None]
  - Nervousness [None]
  - Dysphagia [None]
  - Facial nerve disorder [None]
  - Photophobia [None]

NARRATIVE: CASE EVENT DATE: 20150920
